FAERS Safety Report 12158735 (Version 1)
Quarter: 2016Q1

REPORT INFORMATION
  Report Type: Spontaneous
  Country: US (occurrence: US)
  Receive Date: 20160308
  Receipt Date: 20160308
  Transmission Date: 20160526
  Serious: No
  Sender: FDA-Public Use
  Company Number: US-JNJFOC-20160124005

PATIENT
  Age: 36 Month
  Sex: Female
  Weight: 17.24 kg

DRUGS (1)
  1. TYLENOL CHILDRENS SUSPENSION [Suspect]
     Active Substance: ACETAMINOPHEN
     Indication: PYREXIA
     Dosage: 2X
     Route: 048
     Dates: start: 20160128

REACTIONS (2)
  - Inappropriate schedule of drug administration [Unknown]
  - Incorrect dose administered [Unknown]
